FAERS Safety Report 4754881-2 (Version None)
Quarter: 2005Q3

REPORT INFORMATION
  Report Type: 
  Country: None (occurrence: None)
  Receive Date: 20050829
  Receipt Date: 20050222
  Transmission Date: 20060218
  Serious: Yes (Hospitalization, Disabling)
  Sender: FDA-Public Use
  Company Number: US-MERCK-0502USA03183

PATIENT
  Age: 63 Year
  Sex: Female
  Weight: 52 kg

DRUGS (4)
  1. VIOXX [Suspect]
     Indication: ARTHRALGIA
     Route: 048
     Dates: start: 20030908, end: 20040701
  2. VIOXX [Suspect]
     Route: 048
     Dates: start: 20001102, end: 20020801
  3. VIOXX [Suspect]
     Route: 048
     Dates: start: 20020806, end: 20020812
  4. ASPIRIN [Concomitant]
     Route: 065

REACTIONS (10)
  - CARDIOMEGALY [None]
  - CEREBROVASCULAR ACCIDENT [None]
  - CORONARY ARTERY ATHEROSCLEROSIS [None]
  - CORONARY ARTERY DISEASE [None]
  - HYPERTENSION [None]
  - INTERMITTENT CLAUDICATION [None]
  - LUMBAR SPINAL STENOSIS [None]
  - MYOCARDIAL INFARCTION [None]
  - OEDEMA PERIPHERAL [None]
  - TRANSIENT ISCHAEMIC ATTACK [None]
